FAERS Safety Report 9827060 (Version 2)
Quarter: 2014Q4

REPORT INFORMATION
  Report Type: Spontaneous
  Country: US (occurrence: None)
  Receive Date: 20131120
  Receipt Date: 20141105
  Transmission Date: 20150529
  Serious: Yes (Hospitalization)
  Sender: FDA-Public Use
  Company Number: US-JNJFOC-20130611083

PATIENT
  Age: 73 Year
  Sex: Female
  Weight: 98.43 kg

DRUGS (2)
  1. LOCAL HAEMOSTATICS [Suspect]
     Active Substance: UNSPECIFIED INGREDIENT
     Indication: HAEMOSTASIS
     Dosage: TOPICAL
     Route: 061
     Dates: start: 20121004, end: 20121004
  2. EVITHROM [Suspect]
     Active Substance: THROMBIN HUMAN
     Indication: HAEMOSTASIS
     Dosage: 6 KITS
     Dates: start: 20121004, end: 20121004

REACTIONS (2)
  - Drug ineffective [None]
  - Haematoma [None]

NARRATIVE: CASE EVENT DATE: 20121004
